FAERS Safety Report 5128591-6 (Version None)
Quarter: 2006Q4

REPORT INFORMATION
  Report Type: 
  Country: None (occurrence: None)
  Receive Date: 20061017
  Receipt Date: 20061012
  Transmission Date: 20070319
  Serious: Yes (Hospitalization)
  Sender: FDA-Public Use
  Company Number: GB-BBM-200600083

PATIENT
  Sex: Male

DRUGS (6)
  1. CEFUROXIME SODIUM [Suspect]
     Indication: ANTIBIOTIC PROPHYLAXIS
     Dosage: 1.5G SINGLE DOSE
     Route: 042
     Dates: start: 20060313, end: 20060313
  2. GELOFUSINE [Suspect]
     Route: 042
     Dates: start: 20060313, end: 20060313
  3. LEVOBUPIVACAINE [Concomitant]
     Route: 042
     Dates: start: 20060313, end: 20060313
  4. LIGNOCAINE [Concomitant]
     Route: 042
     Dates: start: 20060313, end: 20060313
  5. TRAMADOL HCL [Concomitant]
  6. ACETAMINOPHEN W/ CODEINE [Concomitant]

REACTIONS (7)
  - ANAPHYLACTOID REACTION [None]
  - CIRCULATORY COLLAPSE [None]
  - FLUSHING [None]
  - LOSS OF CONSCIOUSNESS [None]
  - OEDEMA [None]
  - OXYGEN SATURATION DECREASED [None]
  - WHEEZING [None]
